FAERS Safety Report 24278250 (Version 1)
Quarter: 2024Q3

REPORT INFORMATION
  Report Type: Spontaneous
  Country: US (occurrence: None)
  Receive Date: 20240830
  Receipt Date: 20240830
  Transmission Date: 20241017
  Serious: Yes (unspecified)
  Sender: Public
  Company Number: None

PATIENT
  Sex: Female

DRUGS (1)
  1. KETAMINE [Suspect]
     Active Substance: KETAMINE
     Indication: Depression
     Dates: start: 20231003, end: 20231110

REACTIONS (2)
  - Loss of personal independence in daily activities [None]
  - Post-traumatic stress disorder [None]

NARRATIVE: CASE EVENT DATE: 20231031
